FAERS Safety Report 5726730-7 (Version None)
Quarter: 2008Q2

REPORT INFORMATION
  Report Type: 
  Country: None (occurrence: None)
  Receive Date: 20080502
  Receipt Date: 20080421
  Transmission Date: 20081010
  Serious: Yes (Hospitalization, Other)
  Sender: FDA-Public Use
  Company Number: US-PFIZER INC-2008020005

PATIENT
  Sex: Female
  Weight: 54.4 kg

DRUGS (6)
  1. LYRICA [Suspect]
     Indication: PAIN
     Route: 048
     Dates: start: 20070101, end: 20080201
  2. PERCOCET [Suspect]
     Indication: BREAKTHROUGH PAIN
  3. MORPHINE [Suspect]
     Indication: PAIN
  4. NIFEDIPINE [Concomitant]
  5. ZOLOFT [Concomitant]
  6. SEROQUEL [Concomitant]

REACTIONS (5)
  - DRUG INTOLERANCE [None]
  - GAIT DISTURBANCE [None]
  - LIP SWELLING [None]
  - PAIN [None]
  - PAIN IN EXTREMITY [None]
